FAERS Safety Report 8006632-6 (Version None)
Quarter: 2011Q4

REPORT INFORMATION
  Report Type: 
  Country: None (occurrence: None)
  Receive Date: 20111227
  Receipt Date: 20111220
  Transmission Date: 20120403
  Serious: Yes (Hospitalization)
  Sender: FDA-Public Use
  Company Number: US-BAYER-2011-122880

PATIENT
  Age: 68 Year
  Sex: Male

DRUGS (11)
  1. NEXAVAR [Suspect]
     Indication: PRODUCT USED FOR UNKNOWN INDICATION
     Dosage: 400 MG, BID
     Route: 048
     Dates: start: 20111027
  2. FUROSEMIDE [Concomitant]
     Dosage: UNK
     Dates: start: 20111008
  3. MEGESTROL ACETATE [Concomitant]
     Dosage: UNK
     Dates: start: 20110210
  4. POLYETHYLENE GLYCOL [Concomitant]
     Dosage: UNK
     Dates: start: 20111101
  5. FLUTICASONE FUROATE [Concomitant]
     Dosage: UNK
     Dates: start: 20111101
  6. CALMOSEPTINE [CALAMINE] [Concomitant]
     Dosage: UNK
     Dates: start: 20111019
  7. ZOLPIDEM [Concomitant]
     Dosage: UNK
     Dates: start: 20110909
  8. MAGNESIUM CITRATE [Concomitant]
     Dosage: UNK
     Dates: start: 20111029
  9. CIPROFLOXACIN [Concomitant]
     Dosage: UNK
     Dates: start: 20111103
  10. HYDROCODONE [Concomitant]
     Dosage: UNK
     Dates: start: 20111018
  11. METOLAZONE [Concomitant]
     Dosage: UNK
     Dates: start: 20111020

REACTIONS (1)
  - CONTUSION [None]
